FAERS Safety Report 9939390 (Version 1)
Quarter: 2014Q1

REPORT INFORMATION
  Report Type: Report from Study
  Country: US (occurrence: US)
  Receive Date: 20140303
  Receipt Date: 20140303
  Transmission Date: 20141002
  Serious: No
  Sender: FDA-Public Use
  Company Number: US-ABBVIE-13P-163-1034624-00

PATIENT
  Age: 57 Year
  Sex: Female
  Weight: 71.28 kg

DRUGS (4)
  1. HUMIRA PEN [Suspect]
     Indication: COLITIS ULCERATIVE
     Dates: start: 201211
  2. PENTASSA [Concomitant]
     Indication: COLITIS ULCERATIVE
  3. ATIVAN [Concomitant]
     Indication: ANXIETY
  4. NORFLEX [Concomitant]
     Indication: PAIN

REACTIONS (1)
  - Cough [Not Recovered/Not Resolved]
